FAERS Safety Report 5234341-5 (Version None)
Quarter: 2007Q1

REPORT INFORMATION
  Report Type: 
  Country: None (occurrence: None)
  Receive Date: 20070209
  Receipt Date: 20070131
  Transmission Date: 20070707
  Serious: Yes (Other)
  Sender: FDA-Public Use
  Company Number: US-ABBOTT-07P-163-0357671-00

PATIENT
  Sex: Male

DRUGS (1)
  1. DEPAKOTE [Suspect]
     Indication: DRUG USE FOR UNKNOWN INDICATION
     Dates: start: 20000101

REACTIONS (5)
  - AZOOSPERMIA [None]
  - EJACULATION FAILURE [None]
  - PENIS DEVIATION [None]
  - PRIAPISM [None]
  - UNEVALUABLE EVENT [None]
